FAERS Safety Report 4880091-4 (Version None)
Quarter: 2005Q4

REPORT INFORMATION
  Report Type: 
  Country: None (occurrence: None)
  Receive Date: 20051223
  Receipt Date: 20050914
  Transmission Date: 20060501
  Serious: Yes (Hospitalization)
  Sender: FDA-Public Use
  Company Number: 05P-163-0310976-00

PATIENT
  Age: 78 Year
  Sex: Female
  Weight: 50.3493 kg

DRUGS (5)
  1. HUMIRA [Suspect]
     Indication: RHEUMATOID ARTHRITIS
     Dosage: 40 MG, 1 IN 1 WK, SUBCUTANEOUS
     Route: 058
     Dates: start: 20050801
  2. PREDNISONE [Concomitant]
  3. BLOOD PRESSURE PILL [Concomitant]
  4. ALPRAZOLAM [Concomitant]
  5. TRAMAZAPAM [Concomitant]

REACTIONS (3)
  - ABDOMINAL PAIN [None]
  - ALOPECIA [None]
  - DYSPNOEA [None]
